FAERS Safety Report 7904963-9 (Version None)
Quarter: 2011Q4

REPORT INFORMATION
  Report Type: 
  Country: None (occurrence: None)
  Receive Date: 20111109
  Receipt Date: 20110721
  Transmission Date: 20120403
  Serious: No
  Sender: FDA-Public Use
  Company Number: US-BAYER-2011-064389

PATIENT
  Sex: Male

DRUGS (3)
  1. IBUPROFEN [Concomitant]
     Indication: TOOTHACHE
  2. ALEVE (CAPLET) [Suspect]
     Indication: TOOTHACHE
     Route: 048
  3. ORAJEL [Concomitant]
     Indication: TOOTHACHE

REACTIONS (2)
  - INSOMNIA [None]
  - PAIN [None]
